FAERS Safety Report 21447307 (Version 1)
Quarter: 2022Q4

REPORT INFORMATION
  Report Type: Spontaneous
  Country: US (occurrence: US)
  Receive Date: 20221012
  Receipt Date: 20221012
  Transmission Date: 20230113
  Serious: No
  Sender: FDA-Public Use
  Company Number: US-009507513-2209USA009324

PATIENT

DRUGS (2)
  1. KEYTRUDA [Suspect]
     Active Substance: PEMBROLIZUMAB
     Dosage: UNK
     Dates: start: 2020
  2. ERIBULIN [Suspect]
     Active Substance: ERIBULIN
     Dosage: UNK

REACTIONS (1)
  - Rhinorrhoea [Unknown]

NARRATIVE: CASE EVENT DATE: 20220101
